FAERS Safety Report 6114488-1 (Version None)
Quarter: 2009Q1

REPORT INFORMATION
  Report Type: 
  Country: None (occurrence: None)
  Receive Date: 20090313
  Receipt Date: 20090305
  Transmission Date: 20090719
  Serious: Yes (Other)
  Sender: FDA-Public Use
  Company Number: US-AMGEN-QUU337085

PATIENT
  Sex: Male

DRUGS (1)
  1. ENBREL [Suspect]
     Indication: ANKYLOSING SPONDYLITIS
     Route: 058
     Dates: start: 20040301

REACTIONS (9)
  - ANKYLOSING SPONDYLITIS [None]
  - ARTHRALGIA [None]
  - ATRIAL FIBRILLATION [None]
  - HYPERTENSION [None]
  - HYPOAESTHESIA [None]
  - IRITIS [None]
  - MUSCLE TWITCHING [None]
  - THERAPEUTIC RESPONSE DECREASED [None]
  - VENTRICULAR EXTRASYSTOLES [None]
